FAERS Safety Report 9470653 (Version 3)
Quarter: 2015Q2

REPORT INFORMATION
  Report Type: Spontaneous
  Country: US (occurrence: US)
  Receive Date: 20130822
  Receipt Date: 20150612
  Transmission Date: 20150821
  Serious: Yes (Congenital Anomaly, Other)
  Sender: FDA-Public Use
  Company Number: US-ELI_LILLY_AND_COMPANY-US201308005418

PATIENT

DRUGS (10)
  1. PROZAC [Suspect]
     Active Substance: FLUOXETINE HYDROCHLORIDE
     Indication: DEPRESSION
     Dosage: 20-60 MG, QD
     Route: 064
  2. INSULIN REGULAR HM [Concomitant]
     Active Substance: INSULIN NOS
     Indication: GESTATIONAL DIABETES
     Dosage: 22 U, EACH MORNING
     Route: 064
  3. INSULIN N [Concomitant]
     Dosage: 20 U, EACH EVENING
     Route: 064
  4. NADOLOL. [Concomitant]
     Active Substance: NADOLOL
     Indication: PRODUCT USED FOR UNKNOWN INDICATION
     Dosage: 1 DF, BID
     Route: 064
  5. ASCORBIC ACID. [Concomitant]
     Active Substance: ASCORBIC ACID
     Indication: VITAMIN SUPPLEMENTATION
     Dosage: 1 DF, QD
     Route: 064
  6. TOCOPHEROL [Concomitant]
     Active Substance: TOCOPHEROL
     Route: 064
  7. ZOLMITRIPTAN. [Concomitant]
     Active Substance: ZOLMITRIPTAN
     Indication: MIGRAINE
     Dosage: 1 DF, QD
     Route: 064
  8. INSULIN N [Concomitant]
     Indication: GESTATIONAL DIABETES
     Dosage: 22 U, EACH MORNING
     Route: 064
  9. VITAMIN E [Concomitant]
     Active Substance: .ALPHA.-TOCOPHEROL
     Indication: VITAMIN SUPPLEMENTATION
     Dosage: 1 DF, QD
     Route: 064
  10. INSULIN REGULAR HM [Concomitant]
     Active Substance: INSULIN NOS
     Dosage: 24 U, EACH EVENING
     Route: 064

REACTIONS (7)
  - Congenital myopathy [Unknown]
  - Cardiomyopathy [Unknown]
  - Atrial septal defect [Unknown]
  - Large for dates baby [Unknown]
  - Congenital heart valve disorder [Unknown]
  - Exposure during breast feeding [Unknown]
  - Foetal exposure during pregnancy [Unknown]
